FAERS Safety Report 13067897 (Version 1)
Quarter: 2016Q4

REPORT INFORMATION
  Report Type: Spontaneous
  Country: US (occurrence: US)
  Receive Date: 20161227
  Receipt Date: 20161227
  Transmission Date: 20170207
  Serious: Yes (Other)
  Sender: FDA-Public Use
  Company Number: None

PATIENT
  Age: 50 Year
  Sex: Male

DRUGS (1)
  1. STIVARGA [Suspect]
     Active Substance: REGORAFENIB
     Indication: COLORECTAL CANCER
     Dosage: 160MG DAILY FOR 21 DAYS ON, 7 DAYS OFF PO
     Route: 048
     Dates: start: 201611

REACTIONS (6)
  - Fatigue [None]
  - Diarrhoea [None]
  - Mood altered [None]
  - Amnesia [None]
  - Blood pressure increased [None]
  - Depression [None]

NARRATIVE: CASE EVENT DATE: 201612
